FAERS Safety Report 10025234 (Version 2)
Quarter: 2014Q2

REPORT INFORMATION
  Report Type: Spontaneous
  Country: JP (occurrence: None)
  Receive Date: 20140218
  Receipt Date: 20140407
  Transmission Date: 20141212
  Serious: Yes (Hospitalization, Disabling)
  Sender: FDA-Public Use
  Company Number: JP-013595

PATIENT
  Age: 68 Year
  Sex: Male

DRUGS (7)
  1. DESMOPRESSIN [Suspect]
     Indication: DIABETES INSIPIDUS
     Dosage: 1 PUSH DAILY
     Route: 045
     Dates: start: 20131101
  2. MICAMLO [Suspect]
     Indication: HYPERTENSION
     Dosage: (DAILY DOSE = 40 MG TELMISARTAN AND 5 MG AMLODIPINE BESYLATE ORAL)
     Dates: start: 1993, end: 20131107
  3. MYSLEE [Suspect]
     Indication: INSOMNIA
     Route: 048
     Dates: start: 1993, end: 20131107
  4. CORTRIL [Concomitant]
  5. URSODEOXYCHOLIC ACID [Concomitant]
  6. THYRADIN-S [Concomitant]
  7. MINIRIN MELT [Suspect]
     Indication: DIABETES INSIPIDUS
     Route: 048
     Dates: start: 20131025, end: 20131101

REACTIONS (4)
  - Hepatic function abnormal [None]
  - Neutrophil count decreased [None]
  - Aspartate aminotransferase increased [None]
  - Alanine aminotransferase increased [None]
